FAERS Safety Report 14328105 (Version 1)
Quarter: 2017Q4

REPORT INFORMATION
  Report Type: Report from Study
  Country: US (occurrence: US)
  Receive Date: 20171227
  Receipt Date: 20171227
  Transmission Date: 20180321
  Serious: Yes (Death, Other)
  Sender: FDA-Public Use
  Company Number: US-ASTELLAS-2017US055680

PATIENT
  Sex: Male

DRUGS (1)
  1. TACROLIMUS. [Suspect]
     Active Substance: TACROLIMUS
     Indication: LIVER TRANSPLANT
     Dosage: 4 MG (3MG EVERY MORNING AND 1MG EVERY EVENING), ONCE DAILY
     Route: 048

REACTIONS (3)
  - Confusional state [Unknown]
  - Hypoxia [Unknown]
  - Brain death [Fatal]
